FAERS Safety Report 6223474-2 (Version None)
Quarter: 2009Q2

REPORT INFORMATION
  Report Type: 
  Country: None (occurrence: None)
  Receive Date: 20090605
  Receipt Date: 20090522
  Transmission Date: 20091009
  Serious: Yes (Hospitalization)
  Sender: FDA-Public Use
  Company Number: 20090428CINRY0911

PATIENT
  Age: 47 Year
  Sex: Female

DRUGS (1)
  1. CINRYZE [Suspect]
     Indication: HEREDITARY ANGIOEDEMA
     Dosage: INTRAVENOUS
     Route: 042

REACTIONS (5)
  - CHEST PAIN [None]
  - OEDEMA PERIPHERAL [None]
  - PAIN [None]
  - SENSATION OF HEAVINESS [None]
  - THROMBOSIS IN DEVICE [None]
